FAERS Safety Report 9100445 (Version 1)
Quarter: 2013Q1

REPORT INFORMATION
  Report Type: Spontaneous
  Country: US (occurrence: US)
  Receive Date: 20130215
  Receipt Date: 20130215
  Transmission Date: 20140127
  Serious: Yes (Other)
  Sender: FDA-Public Use
  Company Number: US-PFIZER INC-2013057048

PATIENT
  Age: 25 Year
  Sex: Male
  Weight: 145.13 kg

DRUGS (7)
  1. LYRICA [Suspect]
     Indication: PAIN IN EXTREMITY
     Dosage: 300 MG, 2X/DAY
     Route: 048
  2. LYRICA [Suspect]
     Indication: ARTHRALGIA
     Dosage: UNK
     Route: 048
  3. LYRICA [Suspect]
     Indication: PAIN IN EXTREMITY
  4. GABAPENTIN [Suspect]
     Indication: PAIN IN EXTREMITY
     Dosage: 600 MG, 2X/DAY
     Route: 048
  5. GABAPENTIN [Suspect]
     Indication: ARTHRALGIA
  6. GABAPENTIN [Suspect]
     Indication: PAIN IN EXTREMITY
  7. IBUPROFEN [Concomitant]
     Dosage: UNK

REACTIONS (4)
  - Musculoskeletal disorder [Unknown]
  - Drug ineffective [Unknown]
  - Scar [Unknown]
  - Pain [Unknown]
